FAERS Safety Report 4433183-8 (Version None)
Quarter: 2004Q3

REPORT INFORMATION
  Report Type: 
  Country: None (occurrence: None)
  Receive Date: 20040823
  Receipt Date: 20040809
  Transmission Date: 20050211
  Serious: Yes (Other)
  Sender: FDA-Public Use
  Company Number: 2004054148

PATIENT
  Age: 23 Year
  Sex: Male

DRUGS (2)
  1. GEODON [Suspect]
     Indication: SCHIZOAFFECTIVE DISORDER
     Dosage: 160 MG (1 IN 1 D), ORAL
     Route: 048
     Dates: start: 20031201
  2. VALPROATE SODIUM [Suspect]
     Indication: ILL-DEFINED DISORDER
     Dosage: 1000 MG (1 IN 1 D)

REACTIONS (6)
  - ANTICONVULSANT DRUG LEVEL INCREASED [None]
  - ARTHRALGIA [None]
  - ATAXIA [None]
  - FATIGUE [None]
  - HEADACHE [None]
  - MYALGIA [None]
